FAERS Safety Report 24843457 (Version 2)
Quarter: 2025Q2

REPORT INFORMATION
  Report Type: Report from Study
  Country: US (occurrence: US)
  Receive Date: 20250115
  Receipt Date: 20250527
  Transmission Date: 20250717
  Serious: No
  Sender: SUNOVION
  Company Number: US-SMPA-2024SPA006881AA

PATIENT

DRUGS (2)
  1. ORGOVYX [Suspect]
     Active Substance: RELUGOLIX
     Indication: Prostate cancer
     Dosage: 120 MG, QD
     Route: 048
     Dates: start: 20241211
  2. XTANDI [Concomitant]
     Active Substance: ENZALUTAMIDE
     Route: 065

REACTIONS (7)
  - Mood swings [Unknown]
  - Pollakiuria [Unknown]
  - Back disorder [Unknown]
  - Arthropathy [Unknown]
  - Pain [Unknown]
  - Hyperhidrosis [Unknown]
  - Insomnia [Unknown]
